FAERS Safety Report 5395128-6 (Version None)
Quarter: 2007Q3

REPORT INFORMATION
  Report Type: 
  Country: None (occurrence: None)
  Receive Date: 20070724
  Receipt Date: 20070709
  Transmission Date: 20080115
  Serious: Yes (Death, Other)
  Sender: FDA-Public Use
  Company Number: GB-BAYER-200714145GDS

PATIENT
  Age: 70 Year
  Sex: Male

DRUGS (45)
  1. NAPROXEN [Suspect]
     Indication: PYREXIA
     Dosage: UNIT DOSE: 100 MG
     Route: 048
     Dates: start: 20060920, end: 20060926
  2. ROHYPNOL [Suspect]
     Indication: INSOMNIA
     Dosage: UNIT DOSE: 1 MG
     Route: 048
     Dates: start: 20060913, end: 20060926
  3. CERCINE [Suspect]
     Indication: CONVULSION PROPHYLAXIS
     Route: 048
     Dates: start: 20060924, end: 20060926
  4. AMOBAN [Suspect]
     Indication: INSOMNIA
     Route: 048
     Dates: start: 20060920, end: 20060925
  5. MAGMITT [Suspect]
     Indication: CONSTIPATION
     Dosage: UNIT DOSE: 330 MG
     Route: 048
     Dates: start: 20060829, end: 20060926
  6. PHENOBARBITAL TAB [Suspect]
     Indication: CONVULSION PROPHYLAXIS
     Dosage: UNIT DOSE: 10 MG
     Route: 048
     Dates: start: 20060828, end: 20060923
  7. MYSLEE [Suspect]
     Indication: INSOMNIA
     Dosage: UNIT DOSE: 5 MG
     Route: 048
     Dates: start: 20060822, end: 20060923
  8. UBRETID [Suspect]
     Indication: NEUROGENIC BLADDER
     Dosage: UNIT DOSE: 5 MG
     Route: 048
     Dates: start: 20060908, end: 20060929
  9. SPELEAR [Suspect]
     Indication: SPUTUM RETENTION
     Dosage: UNIT DOSE: 400 MG
     Route: 048
     Dates: start: 20060914, end: 20060924
  10. SELBEX [Suspect]
     Indication: GASTRITIS
     Dosage: UNIT DOSE: 50 MG
     Route: 048
     Dates: start: 20060924, end: 20060924
  11. LANSOPRAZOLE [Suspect]
     Indication: STRESS ULCER
     Dosage: UNIT DOSE: 15 MG
     Route: 048
     Dates: start: 20060824, end: 20060929
  12. TEGRETOL [Suspect]
     Indication: WOUND COMPLICATION
     Dosage: UNIT DOSE: 100 MG
     Route: 048
     Dates: start: 20060922, end: 20060923
  13. ASPIRIN [Suspect]
     Indication: CEREBRAL INFARCTION
     Dosage: UNIT DOSE: 100 MG
     Route: 048
     Dates: start: 20060830, end: 20060930
  14. POLARAMINE [Suspect]
     Indication: PRURITUS
     Dosage: UNIT DOSE: 2 MG
     Route: 048
     Dates: start: 20060923, end: 20060923
  15. LOXONIN [Suspect]
     Indication: WOUND COMPLICATION
     Dosage: UNIT DOSE: 60 MG
     Route: 048
     Dates: start: 20060918, end: 20060924
  16. VOLTAREN [Suspect]
     Indication: WOUND COMPLICATION
     Dosage: UNIT DOSE: 25 MG
     Route: 048
     Dates: start: 20060904, end: 20060923
  17. KETOPROFEN [Suspect]
     Indication: WOUND COMPLICATION
     Route: 061
     Dates: start: 20060917
  18. LAXOBERON [Suspect]
     Indication: CONSTIPATION
     Route: 048
     Dates: start: 20060902
  19. RINDERON-VG [Suspect]
     Indication: RASH
     Route: 061
     Dates: start: 20060918
  20. SOLU-MEDROL [Suspect]
     Indication: ASTHMA
     Dosage: UNIT DOSE: 125 MG
     Route: 042
     Dates: start: 20060920, end: 20060921
  21. AMINOFLUID [Suspect]
     Indication: FLUID REPLACEMENT
     Route: 042
     Dates: start: 20060925, end: 20060926
  22. PASIL [Suspect]
     Indication: INFECTION
     Dosage: UNIT DOSE: 500 MG
     Route: 042
     Dates: start: 20060920, end: 20060920
  23. FINIBAX [Suspect]
     Indication: INFECTION
     Dosage: UNIT DOSE: 0.25 MG
     Route: 042
     Dates: start: 20060919, end: 20060920
  24. FLUMARIN [Suspect]
     Indication: INFECTION
     Dosage: UNIT DOSE: 1 G
     Route: 042
     Dates: start: 20060917, end: 20060917
  25. NEO-MINOPHAGEN C [Suspect]
     Indication: HEPATIC FUNCTION ABNORMAL
     Dosage: UNIT DOSE: 20 ML
     Route: 042
     Dates: start: 20060901, end: 20060927
  26. SENNOSIDE [Concomitant]
     Indication: CONSTIPATION
     Route: 065
     Dates: start: 20060822, end: 20060822
  27. HUMULIN 70/30 [Concomitant]
     Indication: HYPERGLYCAEMIA
     Route: 065
     Dates: start: 20060823, end: 20060823
  28. SOLDEM [Concomitant]
     Indication: FLUID REPLACEMENT
     Route: 065
     Dates: start: 20060823, end: 20060823
  29. MOBIC [Concomitant]
     Indication: WOUND COMPLICATION
     Route: 065
     Dates: start: 20060824, end: 20060824
  30. ALBUMIN (HUMAN) [Concomitant]
     Indication: SHOCK
     Route: 065
     Dates: start: 20060824, end: 20060824
  31. NAROPIN [Concomitant]
     Indication: WOUND COMPLICATION
     Route: 065
     Dates: start: 20060824, end: 20060826
  32. AMINOTRIPA 1 [Concomitant]
     Indication: ORAL INTAKE REDUCED
     Route: 065
     Dates: start: 20060824, end: 20060830
  33. OMEPRAZOLE [Concomitant]
     Indication: STRESS ULCER
     Route: 065
     Dates: start: 20060824, end: 20060830
  34. CATACLOT [Concomitant]
     Indication: CEREBRAL INFARCTION
     Route: 065
     Dates: start: 20060824, end: 20060824
  35. MULTIVITAMIN ADDITIVE [Concomitant]
     Indication: ORAL INTAKE REDUCED
  36. HEPARIN [Concomitant]
     Indication: DRUG USE FOR UNKNOWN INDICATION
     Route: 065
     Dates: start: 20060824, end: 20060827
  37. PANSPORIN [Concomitant]
     Indication: INFECTION PROPHYLAXIS
     Route: 065
     Dates: start: 20060824, end: 20060826
  38. PERDIPINE [Concomitant]
     Indication: HYPERTENSION
     Route: 065
     Dates: start: 20060824, end: 20060824
  39. POTACOL-R [Concomitant]
     Indication: CARDIOVASCULAR INSUFFICIENCY
     Route: 065
     Dates: start: 20060824, end: 20060824
  40. POTACOL-R [Concomitant]
     Route: 065
     Dates: start: 20060831, end: 20060911
  41. RADICUT [Concomitant]
     Indication: CEREBRAL INFARCTION
     Route: 065
     Dates: start: 20060824, end: 20060903
  42. LOW MOLECULAR DEXTRAN [Concomitant]
     Indication: CARDIOVASCULAR INSUFFICIENCY
     Route: 065
     Dates: start: 20060824, end: 20060825
  43. BISOLVON [Concomitant]
     Indication: SPUTUM RETENTION
     Route: 065
     Dates: start: 20060824, end: 20060824
  44. BISOLVON [Concomitant]
     Route: 065
     Dates: start: 20060829, end: 20060904
  45. WAKOBITAL [Concomitant]
     Indication: CONVULSION PROPHYLAXIS
     Route: 065
     Dates: start: 20060825, end: 20060828

REACTIONS (3)
  - LIVER DISORDER [None]
  - OCULOMUCOCUTANEOUS SYNDROME [None]
  - SEPSIS [None]
